FAERS Safety Report 15723921 (Version 1)
Quarter: 2018Q4

REPORT INFORMATION
  Report Type: Spontaneous
  Country: US (occurrence: US)
  Receive Date: 20181214
  Receipt Date: 20181214
  Transmission Date: 20190205
  Serious: Yes (Death)
  Sender: FDA-Public Use
  Company Number: US-ELI_LILLY_AND_COMPANY-US201812005230

PATIENT
  Age: 60 Year
  Sex: Female

DRUGS (2)
  1. CYRAMZA [Suspect]
     Active Substance: RAMUCIRUMAB
     Indication: LUNG NEOPLASM MALIGNANT
     Dosage: 800 MG, CYCLICAL (EVERY 3 WEEKS)
     Route: 042
     Dates: start: 20180725
  2. CYRAMZA [Suspect]
     Active Substance: RAMUCIRUMAB
     Dosage: 800 MG, CYCLICAL (EVERY 3 WEEKS)
     Route: 042
     Dates: start: 20180725

REACTIONS (1)
  - Death [Fatal]

NARRATIVE: CASE EVENT DATE: 20181208
